FAERS Safety Report 25660628 (Version 1)
Quarter: 2025Q3

REPORT INFORMATION
  Report Type: Spontaneous
  Country: US (occurrence: US)
  Receive Date: 20250808
  Receipt Date: 20250808
  Transmission Date: 20251021
  Serious: No
  Sender: BAYER HEALTHCARE PHARMACEUTICALS INC.
  Company Number: US-MLMSERVICE-20250728-PI592981-00230-1

PATIENT
  Age: 7 Decade
  Sex: Female

DRUGS (12)
  1. MOXIFLOXACIN [Suspect]
     Active Substance: MOXIFLOXACIN
     Indication: Borderline leprosy
     Route: 048
  2. MOXIFLOXACIN [Suspect]
     Active Substance: MOXIFLOXACIN
     Indication: Lepromatous leprosy
  3. METHOTREXATE [Concomitant]
     Active Substance: METHOTREXATE
     Indication: Borderline leprosy
     Dosage: 15 MG, OW
  4. METHOTREXATE [Concomitant]
     Active Substance: METHOTREXATE
     Indication: Lepromatous leprosy
  5. PREDNISONE [Concomitant]
     Active Substance: PREDNISONE
     Indication: Borderline leprosy
  6. PREDNISONE [Concomitant]
     Active Substance: PREDNISONE
     Indication: Lepromatous leprosy
     Dosage: 40 MG, QD
  7. PREDNISONE [Concomitant]
     Active Substance: PREDNISONE
     Indication: Borderline leprosy
     Dosage: 20 MG, QD
  8. PREDNISONE [Concomitant]
     Active Substance: PREDNISONE
     Indication: Borderline leprosy
     Dosage: 5 MG, QD
  9. RIFAMPIN [Concomitant]
     Active Substance: RIFAMPIN
     Indication: Borderline leprosy
  10. RIFAMPIN [Concomitant]
     Active Substance: RIFAMPIN
     Indication: Lepromatous leprosy
  11. MINOCYCLINE [Concomitant]
     Active Substance: MINOCYCLINE HYDROCHLORIDE
     Indication: Borderline leprosy
  12. MINOCYCLINE [Concomitant]
     Active Substance: MINOCYCLINE HYDROCHLORIDE
     Indication: Lepromatous leprosy

REACTIONS (1)
  - Arthralgia [Unknown]
